FAERS Safety Report 8125875-4 (Version None)
Quarter: 2012Q1

REPORT INFORMATION
  Report Type: 
  Country: None (occurrence: None)
  Receive Date: 20120209
  Receipt Date: 20120202
  Transmission Date: 20120608
  Serious: Yes (Other)
  Sender: FDA-Public Use
  Company Number: BR-PFIZER INC-2012029887

PATIENT
  Age: 43 Year
  Sex: Female

DRUGS (3)
  1. AZOPT [Concomitant]
     Indication: GLAUCOMA
     Dosage: 1 GTT IN EACH EYE EVERY 12 HRS
     Dates: start: 20020101
  2. XALATAN [Suspect]
     Indication: GLAUCOMA
     Dosage: ONE DROP IN EACH EYE, 2X/DAY
     Route: 047
     Dates: start: 20020101
  3. TIMOLOL MALEATE [Concomitant]
     Indication: GLAUCOMA
     Dosage: 1 GTT IN EACH EYE EVERY 12 HRS
     Dates: start: 20020101

REACTIONS (2)
  - DIABETES MELLITUS [None]
  - HYPERTENSION [None]
